FAERS Safety Report 25916322 (Version 1)
Quarter: 2025Q4

REPORT INFORMATION
  Report Type: Spontaneous
  Country: US (occurrence: US)
  Receive Date: 20251014
  Receipt Date: 20251014
  Transmission Date: 20260117
  Serious: No
  Sender: SANDOZ
  Company Number: US-SANDOZ-SDZ2025US074183

PATIENT
  Sex: Female

DRUGS (1)
  1. HYRIMOZ [Suspect]
     Active Substance: ADALIMUMAB-ADAZ
     Indication: Product used for unknown indication
     Dosage: HYRIMOZ (ADALIMUMAB-ADAZ) 40MG INJECTION, FOR SUBCUTANEOUS USE IN PREFILLED SYRINGE, ADALIMUMAB 40MG
     Route: 065
     Dates: start: 202504

REACTIONS (3)
  - Asthenia [Unknown]
  - Acne [Unknown]
  - Fatigue [Unknown]

NARRATIVE: CASE EVENT DATE: 20251007
